FAERS Safety Report 10700479 (Version 2)
Quarter: 2015Q1

REPORT INFORMATION
  Report Type: Report from Study
  Country: CA (occurrence: CA)
  Receive Date: 20150109
  Receipt Date: 20150109
  Transmission Date: 20150721
  Serious: Yes (Other)
  Sender: FDA-Public Use
  Company Number: CA-BRISTOL-MYERS SQUIBB COMPANY-19794908

PATIENT
  Age: 78 Year
  Sex: Female

DRUGS (7)
  1. COQ 10 [Concomitant]
     Active Substance: UBIDECARENONE
  2. COVERSYL [Concomitant]
     Active Substance: PERINDOPRIL
  3. ACTONEL [Concomitant]
     Active Substance: RISEDRONATE SODIUM
  4. ABATACEPT [Suspect]
     Active Substance: ABATACEPT
     Indication: RHEUMATOID ARTHRITIS
     Dosage: LAST DOSE ON16-OCT-2013  DOSE HOLDED SINCE NOV-2013
     Route: 042
     Dates: start: 20130812
  5. EXTERNAL-PREDNISONE [Concomitant]
  6. MORPHINE [Concomitant]
     Active Substance: MORPHINE
  7. AZATHIOPRINE. [Concomitant]
     Active Substance: AZATHIOPRINE

REACTIONS (4)
  - Dyspnoea [Unknown]
  - Fatigue [Unknown]
  - Chest pain [Unknown]
  - Goitre [Unknown]

NARRATIVE: CASE EVENT DATE: 201402
